FAERS Safety Report 17722850 (Version 2)
Quarter: 2020Q3

REPORT INFORMATION
  Report Type: Spontaneous
  Country: US (occurrence: US)
  Receive Date: 20200429
  Receipt Date: 20200717
  Transmission Date: 20201102
  Serious: Yes (Hospitalization, Other)
  Sender: FDA-Public Use
  Company Number: US-009507513-2004USA008195

PATIENT
  Age: 45 Year
  Sex: Female
  Weight: 82.09 kg

DRUGS (4)
  1. CISPLATIN. [Concomitant]
     Active Substance: CISPLATIN
     Indication: COLON CANCER METASTATIC
     Dosage: UNK
     Route: 042
  2. KEYTRUDA [Suspect]
     Active Substance: PEMBROLIZUMAB
     Dosage: 200 MILLIGRAM, EVERY 3 WEEKS, 8TH CYCLE
     Route: 042
     Dates: start: 202005, end: 20200521
  3. YERVOY [Suspect]
     Active Substance: IPILIMUMAB
     Indication: COLON CANCER METASTATIC
     Dosage: UNK
     Route: 042
  4. KEYTRUDA [Suspect]
     Active Substance: PEMBROLIZUMAB
     Indication: COLON CANCER METASTATIC
     Dosage: 200 MILLIGRAM, EVERY 3 WEEKS, 7 CYCLES
     Route: 042
     Dates: start: 20190715, end: 201911

REACTIONS (2)
  - Immune-mediated enterocolitis [Recovering/Resolving]
  - Immune-mediated enterocolitis [Recovered/Resolved]

NARRATIVE: CASE EVENT DATE: 201911
